FAERS Safety Report 12876270 (Version 1)
Quarter: 2016Q4

REPORT INFORMATION
  Report Type: Spontaneous
  Country: US (occurrence: US)
  Receive Date: 20161024
  Receipt Date: 20161024
  Transmission Date: 20170207
  Serious: No
  Sender: FDA-Public Use
  Company Number: US-JNJFOC-20160920547

PATIENT
  Age: 31 Year
  Sex: Female

DRUGS (1)
  1. CHILDRENS SUDAFED NASAL DECONGESTANT [Suspect]
     Active Substance: PSEUDOEPHEDRINE HYDROCHLORIDE
     Indication: PRODUCT USED FOR UNKNOWN INDICATION
     Dosage: 3 TSP THE TOP LINE ON THE DOSING CUP
     Route: 048

REACTIONS (5)
  - Dyspnoea [Unknown]
  - Intentional product misuse [Unknown]
  - Drug administered to patient of inappropriate age [Unknown]
  - Heart rate increased [Unknown]
  - Abdominal pain [Unknown]
